FAERS Safety Report 22588816 (Version 1)
Quarter: 2023Q2

REPORT INFORMATION
  Report Type: Spontaneous
  Country: US (occurrence: US)
  Receive Date: 20230612
  Receipt Date: 20230612
  Transmission Date: 20230721
  Serious: Yes (Hospitalization)
  Sender: FDA-Public Use
  Company Number: US-drreddys-LIT/USA/23/0166609

PATIENT
  Age: 17 Year
  Sex: Male

DRUGS (2)
  1. HEPARIN SODIUM [Suspect]
     Active Substance: HEPARIN SODIUM
     Indication: Tumour thrombosis
  2. APIXABAN [Suspect]
     Active Substance: APIXABAN
     Indication: Tumour thrombosis

REACTIONS (7)
  - Disease progression [Unknown]
  - Peripheral swelling [Unknown]
  - Tumour invasion [Unknown]
  - Device related sepsis [Unknown]
  - Osteosarcoma [Unknown]
  - Tumour thrombosis [Unknown]
  - Drug ineffective [Unknown]
